FAERS Safety Report 5009753-5 (Version None)
Quarter: 2006Q2

REPORT INFORMATION
  Report Type: 
  Country: None (occurrence: None)
  Receive Date: 20060524
  Receipt Date: 20060518
  Transmission Date: 20061013
  Serious: Yes (Other)
  Sender: FDA-Public Use
  Company Number: SE-ROCHE-448454

PATIENT
  Age: 39 Year
  Sex: Female

DRUGS (1)
  1. PEGASYS [Suspect]
     Route: 065
     Dates: start: 20040901, end: 20050901

REACTIONS (5)
  - DISEASE RECURRENCE [None]
  - DYSPHONIA [None]
  - FACIAL PALSY [None]
  - PARESIS [None]
  - SKIN DISORDER [None]
